FAERS Safety Report 8247269-3 (Version None)
Quarter: 2012Q1

REPORT INFORMATION
  Report Type: 
  Country: None (occurrence: None)
  Receive Date: 20120329
  Receipt Date: 20120329
  Transmission Date: 20120608
  Serious: No
  Sender: FDA-Public Use
  Company Number: None

PATIENT
  Age: 73 Year
  Sex: Female

DRUGS (1)
  1. AMOXICILLIN AND CLAVULANATE POTASSIUM [Suspect]
     Dates: start: 20100820, end: 20100829

REACTIONS (10)
  - WEIGHT DECREASED [None]
  - BLOOD ALKALINE PHOSPHATASE INCREASED [None]
  - LIVER DISORDER [None]
  - ALANINE AMINOTRANSFERASE INCREASED [None]
  - NAUSEA [None]
  - DECREASED APPETITE [None]
  - HYPOPHAGIA [None]
  - ASPARTATE AMINOTRANSFERASE INCREASED [None]
  - BILIARY DILATATION [None]
  - FATIGUE [None]
